FAERS Safety Report 9182661 (Version 2)
Quarter: 2013Q2

REPORT INFORMATION
  Report Type: Spontaneous
  Country: US (occurrence: US)
  Receive Date: 20130322
  Receipt Date: 20130508
  Transmission Date: 20140414
  Serious: Yes (Death, Other)
  Sender: FDA-Public Use
  Company Number: US-NOVOPROD-373223

PATIENT
  Age: 54 Year
  Sex: Male
  Weight: 99.32 kg

DRUGS (2)
  1. NOVOLIN R RELI-ON [Suspect]
     Indication: TYPE 1 DIABETES MELLITUS
     Dosage: UNK
     Route: 058
  2. NOVOLIN N RELI-ON [Suspect]
     Indication: TYPE 1 DIABETES MELLITUS
     Dosage: UNK
     Route: 058

REACTIONS (4)
  - Coronary artery thrombosis [Fatal]
  - Myocardial infarction [Fatal]
  - Influenza like illness [Not Recovered/Not Resolved]
  - Blood glucose increased [None]
